FAERS Safety Report 9227021 (Version 1)
Quarter: 2013Q2

REPORT INFORMATION
  Report Type: Spontaneous
  Country: US (occurrence: None)
  Receive Date: 20130410
  Receipt Date: 20130410
  Transmission Date: 20140414
  Serious: Yes (Other)
  Sender: FDA-Public Use
  Company Number: None

PATIENT
  Age: 57 Year
  Sex: Female
  Weight: 99.79 kg

DRUGS (10)
  1. GILENYA [Suspect]
     Indication: RELAPSING-REMITTING MULTIPLE SCLEROSIS
     Route: 048
     Dates: start: 20120601, end: 20130325
  2. LIPITOR [Concomitant]
  3. ZETIA [Concomitant]
  4. LISINOPRIL [Concomitant]
  5. ATENELOL [Concomitant]
  6. NEXIUM [Concomitant]
  7. NORTRIPTYLINE [Concomitant]
  8. CYMBALTA [Concomitant]
  9. ESTRADIAL [Concomitant]
  10. SINGULAIR [Concomitant]

REACTIONS (2)
  - Herpes zoster [None]
  - White blood cell count decreased [None]
